FAERS Safety Report 6028967-9 (Version None)
Quarter: 2009Q1

REPORT INFORMATION
  Report Type: 
  Country: None (occurrence: None)
  Receive Date: 20090106
  Receipt Date: 20081230
  Transmission Date: 20090719
  Serious: Yes (Other)
  Sender: FDA-Public Use
  Company Number: PHHY2008FR24756

PATIENT
  Sex: Male

DRUGS (6)
  1. ZOMETA [Suspect]
     Indication: PROSTATE CANCER
     Dosage: 4 MG, QMO
     Dates: start: 20061026
  2. TAXOTERE [Concomitant]
     Dosage: UNK
     Route: 042
     Dates: start: 20061115, end: 20070406
  3. NAVELBINE [Concomitant]
     Dosage: UNK
     Dates: start: 20080125, end: 20080313
  4. ZOLADEX [Concomitant]
     Dosage: 10.8 MG/DAY
     Dates: start: 20041015
  5. OMEPRAZOLE [Concomitant]
     Dosage: 20 MG/DAY
     Dates: start: 20080112
  6. METHYLPREDNISOLONE 16MG TAB [Concomitant]
     Dosage: 20MG/DAY
     Dates: start: 20080112

REACTIONS (14)
  - BLINDNESS [None]
  - CONJUNCTIVITIS [None]
  - DIPLOPIA [None]
  - EYE DISCHARGE [None]
  - EYE DISORDER [None]
  - EYE SWELLING [None]
  - EYELID OEDEMA [None]
  - LACRIMATION INCREASED [None]
  - MYOPIA [None]
  - OCULAR HYPERAEMIA [None]
  - PRESBYOPIA [None]
  - SENSATION OF FOREIGN BODY [None]
  - VISION BLURRED [None]
  - VISUAL ACUITY REDUCED [None]
